FAERS Safety Report 13169587 (Version 2)
Quarter: 2017Q1

REPORT INFORMATION
  Report Type: Report from Study
  Country: DE (occurrence: DE)
  Receive Date: 20170201
  Receipt Date: 20170324
  Transmission Date: 20170428
  Serious: Yes (Other)
  Sender: FDA-Public Use
  Company Number: DE-ROCHE-1717514

PATIENT
  Age: 74 Year
  Sex: Female
  Weight: 68 kg

DRUGS (23)
  1. RANIBIZUMAB [Suspect]
     Active Substance: RANIBIZUMAB
     Dosage: 0.5 MG (RIGHT EYE)
     Route: 050
     Dates: start: 20160113
  2. LATANOPROST. [Concomitant]
     Active Substance: LATANOPROST
     Indication: PRODUCT USED FOR UNKNOWN INDICATION
     Route: 065
     Dates: start: 20150330
  3. RANIBIZUMAB [Suspect]
     Active Substance: RANIBIZUMAB
     Dosage: 0.5 MG (RIGHT EYE)
     Route: 050
     Dates: start: 20160309
  4. RANIBIZUMAB [Suspect]
     Active Substance: RANIBIZUMAB
     Dosage: 0.5 MG (RIGHT EYE)
     Route: 050
     Dates: start: 20161005
  5. RANIBIZUMAB [Suspect]
     Active Substance: RANIBIZUMAB
     Dosage: 0.5 MG (RIGHT EYE)
     Route: 050
     Dates: start: 20160210, end: 20160210
  6. RANIBIZUMAB [Suspect]
     Active Substance: RANIBIZUMAB
     Dosage: 0.5 MG (RIGHT EYE)
     Route: 050
     Dates: start: 20160406
  7. RANIBIZUMAB [Suspect]
     Active Substance: RANIBIZUMAB
     Dosage: 0.5 MG (RIGHT EYE)
     Route: 050
     Dates: start: 20160615
  8. RANIBIZUMAB [Suspect]
     Active Substance: RANIBIZUMAB
     Dosage: 0.5 MG (RIGHT EYE)
     Route: 050
     Dates: start: 20170214
  9. RANIBIZUMAB [Suspect]
     Active Substance: RANIBIZUMAB
     Dosage: 0.5 MG (RIGHT EYE)
     Route: 050
     Dates: start: 20160907
  10. RANIBIZUMAB [Suspect]
     Active Substance: RANIBIZUMAB
     Indication: VISUAL IMPAIRMENT
     Dosage: 0.5 MG (RIGHT EYE)
     Route: 050
     Dates: start: 20150902
  11. RANIBIZUMAB [Suspect]
     Active Substance: RANIBIZUMAB
     Indication: MACULAR OEDEMA
     Dosage: 0.5 MG (RIGHT EYE)
     Route: 050
     Dates: start: 20150929
  12. RANIBIZUMAB [Suspect]
     Active Substance: RANIBIZUMAB
     Indication: NEOVASCULAR AGE-RELATED MACULAR DEGENERATION
     Dosage: 0.5 MG (RIGHT EYE)
     Route: 050
     Dates: start: 20151125
  13. RANIBIZUMAB [Suspect]
     Active Substance: RANIBIZUMAB
     Dosage: 0.5 MG (RIGHT EYE)
     Route: 050
     Dates: start: 20170117, end: 20170117
  14. DORZOLAMIDE [Concomitant]
     Active Substance: DORZOLAMIDE
     Indication: PRODUCT USED FOR UNKNOWN INDICATION
     Route: 065
     Dates: start: 20170215
  15. RANIBIZUMAB [Suspect]
     Active Substance: RANIBIZUMAB
     Dosage: 0.5 MG (LEFT EYE)
     Route: 050
     Dates: start: 20160509
  16. RANIBIZUMAB [Suspect]
     Active Substance: RANIBIZUMAB
     Dosage: 0.5 MG (RIGHT EYE)
     Route: 050
     Dates: start: 20160518
  17. RANIBIZUMAB [Suspect]
     Active Substance: RANIBIZUMAB
     Indication: RETINAL VEIN OCCLUSION
     Dosage: 0.5 MG (RIGHT EYE)
     Route: 050
     Dates: start: 20151028
  18. RANIBIZUMAB [Suspect]
     Active Substance: RANIBIZUMAB
     Dosage: RIGHT EYE
     Route: 050
     Dates: start: 20170314
  19. RANIBIZUMAB [Suspect]
     Active Substance: RANIBIZUMAB
     Dosage: 0.5 MG (LEFT EYE)
     Route: 050
     Dates: start: 20160607
  20. RANIBIZUMAB [Suspect]
     Active Substance: RANIBIZUMAB
     Dosage: 0.5 MG (LEFT EYE)
     Route: 050
     Dates: start: 20160705
  21. RANIBIZUMAB [Suspect]
     Active Substance: RANIBIZUMAB
     Dosage: 0.5 MG (RIGHT EYE)
     Route: 050
     Dates: start: 20160713
  22. RANIBIZUMAB [Suspect]
     Active Substance: RANIBIZUMAB
     Dosage: 0.5 MG (RIGHT EYE)
     Route: 050
     Dates: start: 20161102
  23. DEXA-SINE [Concomitant]
     Indication: PRODUCT USED FOR UNKNOWN INDICATION
     Route: 065
     Dates: start: 20170118, end: 20170215

REACTIONS (5)
  - Inappropriate schedule of drug administration [Unknown]
  - Blepharitis [Recovering/Resolving]
  - Ocular hyperaemia [Recovering/Resolving]
  - Dizziness [Recovered/Resolved]
  - Eye irritation [Recovering/Resolving]

NARRATIVE: CASE EVENT DATE: 20150929
